FAERS Safety Report 7005385-8 (Version None)
Quarter: 2010Q3

REPORT INFORMATION
  Report Type: 
  Country: None (occurrence: None)
  Receive Date: 20100920
  Receipt Date: 20100920
  Transmission Date: 20110219
  Serious: Yes (Life-Threatening, Hospitalization, Disabling)
  Sender: FDA-Public Use
  Company Number: None

PATIENT
  Age: 68 Year
  Sex: Male
  Weight: 77.1115 kg

DRUGS (3)
  1. CISPLATIN [Suspect]
     Indication: OESOPHAGEAL ADENOCARCINOMA
     Dosage: 80MG/2 Q28D IV
     Route: 042
     Dates: start: 20100802, end: 20100830
  2. FLUOROURACIL [Suspect]
     Indication: OESOPHAGEAL ADENOCARCINOMA
     Dosage: 1000MG/M2/DAY Q28D, OVER 96 HOUR IV
     Route: 042
     Dates: start: 20100802, end: 20100903
  3. PANITUMUMAB [Concomitant]

REACTIONS (11)
  - ATELECTASIS [None]
  - ATRIAL FIBRILLATION [None]
  - BLOOD CREATININE INCREASED [None]
  - CHEST PAIN [None]
  - DIARRHOEA [None]
  - ENTEROCOLITIS [None]
  - HYPOTENSION [None]
  - NAUSEA [None]
  - SEPSIS [None]
  - VOMITING [None]
  - WHITE BLOOD CELL COUNT DECREASED [None]
